FAERS Safety Report 5777159-7 (Version None)
Quarter: 2008Q2

REPORT INFORMATION
  Report Type: 
  Country: None (occurrence: None)
  Receive Date: 20080617
  Receipt Date: 20080617
  Transmission Date: 20081010
  Serious: Yes (Other)
  Sender: FDA-Public Use
  Company Number: None

PATIENT
  Sex: Male
  Weight: 66.6788 kg

DRUGS (2)
  1. SINGULAIR [Suspect]
     Indication: FOOD ALLERGY
     Dosage: 1 TABLET IN THE EVENING EVERYDAY PO
     Route: 048
     Dates: start: 20080422, end: 20080511
  2. SINGULAIR [Suspect]
     Indication: SEASONAL ALLERGY
     Dosage: 1 TABLET IN THE EVENING EVERYDAY PO
     Route: 048
     Dates: start: 20080422, end: 20080511

REACTIONS (4)
  - ALOPECIA [None]
  - DRUG INEFFECTIVE [None]
  - FEAR [None]
  - URTICARIA [None]
